FAERS Safety Report 9429533 (Version 2)
Quarter: 2013Q4

REPORT INFORMATION
  Report Type: Report from Study
  Country: US (occurrence: US)
  Receive Date: 20130730
  Receipt Date: 20131120
  Transmission Date: 20140711
  Serious: Yes (Death, Hospitalization)
  Sender: FDA-Public Use
  Company Number: US-ACTELION-A-NJ2013-85701

PATIENT
  Age: 71 Year
  Sex: Female

DRUGS (3)
  1. VELETRI [Suspect]
     Indication: PULMONARY ARTERIAL HYPERTENSION
     Dosage: 14 NG/KG, PER MIN
     Route: 042
     Dates: start: 20130620, end: 20130720
  2. SILDENAFIL [Concomitant]
  3. COUMADIN [Concomitant]

REACTIONS (7)
  - Pulmonary arterial hypertension [Fatal]
  - Disease progression [Fatal]
  - Fluid retention [Unknown]
  - Oedema [Unknown]
  - Epistaxis [Unknown]
  - International normalised ratio increased [Unknown]
  - Headache [Unknown]
